FAERS Safety Report 21239955 (Version 1)
Quarter: 2022Q3

REPORT INFORMATION
  Report Type: Spontaneous
  Country: CA (occurrence: CA)
  Receive Date: 20220822
  Receipt Date: 20220822
  Transmission Date: 20221027
  Serious: Yes (Other)
  Sender: FDA-Public Use
  Company Number: CA-SCALL-2022-CA-001641

PATIENT
  Age: 55 Year
  Sex: Female

DRUGS (10)
  1. RABEPRAZOLE SODIUM [Suspect]
     Active Substance: RABEPRAZOLE SODIUM
     Indication: Dyspepsia
     Dosage: 20 MG TWICE DAILY
     Route: 065
     Dates: start: 20160825, end: 20170506
  2. TRIMEBUTINE [Concomitant]
     Active Substance: TRIMEBUTINE
  3. ATORVASTATIN [Concomitant]
     Active Substance: ATORVASTATIN
  4. IMODIUM [Concomitant]
     Active Substance: LOPERAMIDE HYDROCHLORIDE
  5. OMEPRAZOLE [Suspect]
     Active Substance: OMEPRAZOLE
     Dates: end: 20160825
  6. RANITIDINE [Suspect]
     Active Substance: RANITIDINE
     Indication: Dyspepsia
     Dosage: 150MG DAILY
     Route: 065
  7. METOCLOPRAMIDE [Suspect]
     Active Substance: METOCLOPRAMIDE
     Route: 065
  8. VENLAFAXINE [Concomitant]
     Active Substance: VENLAFAXINE HYDROCHLORIDE
  9. ATENOLOL [Concomitant]
     Active Substance: ATENOLOL
  10. LOSARTAN [Concomitant]
     Active Substance: LOSARTAN

REACTIONS (8)
  - Anal incontinence [Recovered/Resolved]
  - Seizure [Recovered/Resolved]
  - Hypomagnesaemia [Recovered/Resolved]
  - Hypocalcaemia [Recovered/Resolved]
  - Hypokalaemia [Recovered/Resolved]
  - Hypophosphataemia [Recovered/Resolved]
  - Blood sodium decreased [Recovered/Resolved]
  - Urinary incontinence [Recovered/Resolved]

NARRATIVE: CASE EVENT DATE: 20170506
